FAERS Safety Report 8035936-6 (Version None)
Quarter: 2012Q1

REPORT INFORMATION
  Report Type: 
  Country: None (occurrence: None)
  Receive Date: 20120111
  Receipt Date: 20120103
  Transmission Date: 20120608
  Serious: Yes (Hospitalization)
  Sender: FDA-Public Use
  Company Number: US-BAYER-2011-038061

PATIENT
  Age: 47 Year
  Sex: Female
  Weight: 83.9 kg

DRUGS (13)
  1. EFFEXOR XR [Concomitant]
     Indication: ANXIETY
     Dosage: 150 MG, QD
     Route: 048
     Dates: start: 20090209
  2. TRIAMTERENE AND HYDROCHLOROTHIAZIDE [Concomitant]
     Indication: OEDEMA
     Dosage: 25 MG, QD
  3. TRIAMTERENE AND HYDROCHLOROTHIAZIDE [Concomitant]
     Indication: BLOOD PRESSURE ABNORMAL
     Dosage: 37.5 MG, QD
  4. EFFEXOR XR [Concomitant]
     Indication: DEPRESSION
  5. DROSPIRENONE AND ETHINYL ESTRADIOL [Suspect]
     Dosage: UNK
     Route: 048
     Dates: start: 20090201, end: 20090401
  6. DYAZIDE [Concomitant]
     Dosage: 60 MG, QD
     Dates: start: 20081027, end: 20090301
  7. YAZ [Suspect]
     Dosage: UNK
     Dates: start: 20090201, end: 20090401
  8. ASPIRIN [Concomitant]
     Dosage: UNK
     Dates: start: 20080101
  9. BLOOD PRESSURE MEDICINE [Concomitant]
  10. CELEXA [Concomitant]
     Indication: ANXIETY
     Dosage: 60 MG, QD
     Route: 048
     Dates: start: 20081101, end: 20090201
  11. CELEXA [Concomitant]
     Indication: DEPRESSION
  12. DYAZIDE [Concomitant]
     Indication: OEDEMA
     Dosage: 30 MG, QD
     Route: 048
     Dates: start: 20081027, end: 20090301
  13. ALPRAZOLAM [Concomitant]
     Indication: ANXIETY
     Dosage: 0.5 MG, PRN
     Route: 048
     Dates: start: 20081120, end: 20090301

REACTIONS (8)
  - PULMONARY EMBOLISM [None]
  - HEART INJURY [None]
  - ANXIETY [None]
  - DEEP VEIN THROMBOSIS [None]
  - PAIN [None]
  - DYSPNOEA [None]
  - MUSCLE SPASMS [None]
  - ANHEDONIA [None]
